FAERS Safety Report 5402836-7 (Version None)
Quarter: 2007Q3

REPORT INFORMATION
  Report Type: 
  Country: None (occurrence: None)
  Receive Date: 20070730
  Receipt Date: 20070713
  Transmission Date: 20080115
  Serious: Yes (Other)
  Sender: FDA-Public Use
  Company Number: DSA_30297_2007

PATIENT
  Age: 70 Year
  Sex: Female

DRUGS (4)
  1. DILTIAZEM [Suspect]
     Dosage: 120 MG BID ORAL
     Route: 048
  2. ENALAPRIL MALEATE [Concomitant]
  3. URAPIDIL [Concomitant]
  4. MOXONIDINE [Concomitant]

REACTIONS (1)
  - HALLUCINATION [None]
